FAERS Safety Report 7402364-3 (Version None)
Quarter: 2011Q2

REPORT INFORMATION
  Report Type: 
  Country: None (occurrence: None)
  Receive Date: 20110408
  Receipt Date: 20110404
  Transmission Date: 20111010
  Serious: Yes (Other)
  Sender: FDA-Public Use
  Company Number: US-BRISTOL-MYERS SQUIBB COMPANY-15574783

PATIENT
  Age: 68 Year
  Sex: Female
  Weight: 84 kg

DRUGS (5)
  1. NEURONTIN [Interacting]
     Indication: NERVOUS SYSTEM DISORDER
     Dosage: INITIALLY 300MG,REDUCED TO100MG,3/5TIMES ADAY.
     Route: 048
     Dates: start: 20080101
  2. PREDNISONE [Concomitant]
     Indication: RHEUMATOID ARTHRITIS
  3. XANAX [Concomitant]
     Indication: PSYCHOMOTOR HYPERACTIVITY
  4. NORCO [Concomitant]
     Dosage: 1DF=10/325MG
  5. ORENCIA [Suspect]
     Indication: RHEUMATOID ARTHRITIS
     Dates: start: 20100801

REACTIONS (13)
  - FATIGUE [None]
  - NERVOUSNESS [None]
  - PRURITUS GENERALISED [None]
  - AMNESIA [None]
  - WEIGHT INCREASED [None]
  - RASH [None]
  - TREMOR [None]
  - OEDEMA PERIPHERAL [None]
  - ABASIA [None]
  - INCREASED APPETITE [None]
  - DRUG INTERACTION [None]
  - SALIVARY HYPERSECRETION [None]
  - REGURGITATION [None]
